FAERS Safety Report 5324685-0 (Version None)
Quarter: 2007Q2

REPORT INFORMATION
  Report Type: 
  Country: None (occurrence: None)
  Receive Date: 20070509
  Receipt Date: 20070201
  Transmission Date: 20071010
  Serious: Yes (Life-Threatening)
  Sender: FDA-Public Use
  Company Number: TRP_00935_2007

PATIENT
  Age: 10 Year
  Sex: Male
  Weight: 26 kg

DRUGS (1)
  1. AMPHOCIL  (AMPHOCIL/AMPHOTERICIN B CHOLESTERYL SULFATE COMPLEX FOR INJ [Suspect]
     Indication: CANDIDIASIS
     Dosage: 1 MG/KG

REACTIONS (13)
  - ADHESION [None]
  - ANASTOMOTIC COMPLICATION [None]
  - DEHYDRATION [None]
  - ELECTROCARDIOGRAM NORMAL [None]
  - ELECTROCARDIOGRAM QT PROLONGED [None]
  - ELECTROCARDIOGRAM T WAVE AMPLITUDE DECREASED [None]
  - FISTULA [None]
  - HYPOKALAEMIA [None]
  - ILEUS PARALYTIC [None]
  - INTESTINAL OBSTRUCTION [None]
  - METABOLIC ACIDOSIS [None]
  - METABOLIC ALKALOSIS [None]
  - RHABDOMYOLYSIS [None]
